FAERS Safety Report 16299676 (Version 2)
Quarter: 2020Q4

REPORT INFORMATION
  Report Type: Spontaneous
  Country: US (occurrence: US)
  Receive Date: 20190510
  Receipt Date: 20201022
  Transmission Date: 20210113
  Serious: Yes (Other)
  Sender: FDA-Public Use
  Company Number: US-ASTRAZENECA-2019SE63011

PATIENT
  Age: 22074 Day
  Sex: Female
  Weight: 84.4 kg

DRUGS (77)
  1. PRILOSEC [Suspect]
     Active Substance: OMEPRAZOLE MAGNESIUM
     Indication: GASTROOESOPHAGEAL REFLUX DISEASE
     Route: 048
     Dates: start: 2012, end: 201707
  2. HYDROCODONE-ACETAMINOPHEN [Concomitant]
     Active Substance: ACETAMINOPHEN\HYDROCODONE
  3. FUROSEMIDE. [Concomitant]
     Active Substance: FUROSEMIDE
  4. NITROFURAN [Concomitant]
     Active Substance: NITROFURANTOIN
  5. LEVOFLOXACIN. [Concomitant]
     Active Substance: LEVOFLOXACIN
  6. AMPICILLIN [Concomitant]
     Active Substance: AMPICILLIN
  7. GABAPENTIN. [Concomitant]
     Active Substance: GABAPENTIN
     Indication: NEURALGIA
     Dates: start: 201410, end: 201411
  8. OXYCODONE [Concomitant]
     Active Substance: OXYCODONE
  9. MORPHINE SULFATE. [Concomitant]
     Active Substance: MORPHINE SULFATE
  10. CYANOCOBALAMIN. [Concomitant]
     Active Substance: CYANOCOBALAMIN
  11. CALCIUM-VITAMIN D [Concomitant]
     Active Substance: CALCIUM\VITAMIN D
  12. ADDEROLL [Concomitant]
  13. DEPAKOTE [Concomitant]
     Active Substance: DIVALPROEX SODIUM
  14. KETOROLAC [Concomitant]
     Active Substance: KETOROLAC TROMETHAMINE
  15. TESTIM [Concomitant]
     Active Substance: TESTOSTERONE
  16. LOKELMA [Concomitant]
     Active Substance: SODIUM ZIRCONIUM CYCLOSILICATE
  17. PENICILLIN [Concomitant]
     Active Substance: PENICILLIN
  18. OXYCODONE-ACETAMINOPHEN [Concomitant]
     Active Substance: ACETAMINOPHEN\OXYCODONE HYDROCHLORIDE
  19. BIFIDOBACTERIUM-LACTOBACILLUS [Concomitant]
  20. GENTAMYCIN [Concomitant]
     Active Substance: GENTAMICIN
  21. AMITRIPTYLINE [Concomitant]
     Active Substance: AMITRIPTYLINE
  22. NOVOLOG [Concomitant]
     Active Substance: INSULIN ASPART
  23. ZOSYN [Concomitant]
     Active Substance: PIPERACILLIN SODIUM\TAZOBACTAM SODIUM
  24. BENTYL [Concomitant]
     Active Substance: DICYCLOMINE HYDROCHLORIDE
  25. AMLODIPINE [Concomitant]
     Active Substance: AMLODIPINE BESYLATE
     Indication: HYPERTENSION
     Dates: start: 201605, end: 201607
  26. TOPIRAMATE. [Concomitant]
     Active Substance: TOPIRAMATE
     Indication: NEURALGIA
     Dates: start: 201407, end: 201409
  27. TYLENOL [Concomitant]
     Active Substance: ACETAMINOPHEN
     Indication: PAIN
     Dates: start: 201802
  28. MAGNESIUM [Concomitant]
     Active Substance: MAGNESIUM
  29. PHENTERMINE. [Concomitant]
     Active Substance: PHENTERMINE
  30. AMPHETAMINE [Concomitant]
     Active Substance: AMPHETAMINE
  31. LIDODERM [Concomitant]
     Active Substance: LIDOCAINE
  32. BUTRANS [Concomitant]
     Active Substance: BUPRENORPHINE
  33. TRIMETH SULFA [Concomitant]
  34. SEVELAMER [Concomitant]
     Active Substance: SEVELAMER
  35. ELIQUIS [Concomitant]
     Active Substance: APIXABAN
  36. POTASSIUM [Concomitant]
     Active Substance: POTASSIUM
  37. IBUPROFEN. [Concomitant]
     Active Substance: IBUPROFEN
     Indication: PAIN
     Dates: start: 200908
  38. SIMVASTATIN. [Concomitant]
     Active Substance: SIMVASTATIN
  39. LAMICTAL [Concomitant]
     Active Substance: LAMOTRIGINE
  40. SULFAMETHOXAZOLE [Concomitant]
     Active Substance: SULFAMETHOXAZOLE
  41. LATUDA [Concomitant]
     Active Substance: LURASIDONE HYDROCHLORIDE
  42. CHOLESTYRAMINE. [Concomitant]
     Active Substance: CHOLESTYRAMINE
  43. CAPTOPRIL. [Concomitant]
     Active Substance: CAPTOPRIL
  44. TAZOBACTAM [Concomitant]
     Active Substance: TAZOBACTAM
  45. GLUCAGON. [Concomitant]
     Active Substance: GLUCAGON
  46. VITAMIN D [Concomitant]
     Active Substance: VITAMIN D NOS
     Indication: VITAMIN D DEFICIENCY
     Dates: start: 201604
  47. CALCIUM [Concomitant]
     Active Substance: CALCIUM
     Indication: SUPPLEMENTATION THERAPY
     Dates: start: 201512
  48. TYLENOL [Concomitant]
     Active Substance: ACETAMINOPHEN
     Indication: PYREXIA
     Dates: start: 201802
  49. DEXTROAMP-AMPHETAM [Concomitant]
  50. OXYCODONE HYDROCHLORIDE. [Concomitant]
     Active Substance: OXYCODONE HYDROCHLORIDE
  51. CEFPODOXIME [Concomitant]
     Active Substance: CEFPODOXIME
  52. SODIUM CHLORIDE. [Concomitant]
     Active Substance: SODIUM CHLORIDE
  53. ZOFRAN [Concomitant]
     Active Substance: ONDANSETRON HYDROCHLORIDE
  54. TOBRAMYCIN. [Concomitant]
     Active Substance: TOBRAMYCIN
  55. AZTREONAM. [Concomitant]
     Active Substance: AZTREONAM
  56. CEFEPIME [Concomitant]
     Active Substance: CEFEPIME HYDROCHLORIDE
  57. IPRATROPIUM BROMIDE. [Concomitant]
     Active Substance: IPRATROPIUM BROMIDE
  58. CALCIUM ACETATE. [Concomitant]
     Active Substance: CALCIUM ACETATE
  59. BENZONATATE. [Concomitant]
     Active Substance: BENZONATATE
  60. DETROL [Concomitant]
     Active Substance: TOLTERODINE TARTRATE
  61. DEXTROSE. [Concomitant]
     Active Substance: DEXTROSE
  62. ERYTHROMYCIN. [Concomitant]
     Active Substance: ERYTHROMYCIN
  63. PRILOSEC [Suspect]
     Active Substance: OMEPRAZOLE MAGNESIUM
     Indication: GASTROOESOPHAGEAL REFLUX DISEASE
     Route: 048
     Dates: start: 201401, end: 201706
  64. ALPRAZOLAM. [Concomitant]
     Active Substance: ALPRAZOLAM
     Indication: ANXIETY
     Dates: start: 201511, end: 201601
  65. LISINOPRIL. [Concomitant]
     Active Substance: LISINOPRIL
     Indication: HYPERTENSION
     Dates: start: 201502, end: 201608
  66. ASPIRIN. [Concomitant]
     Active Substance: ASPIRIN
  67. SULINDAC. [Concomitant]
     Active Substance: SULINDAC
  68. VALSARTAN. [Concomitant]
     Active Substance: VALSARTAN
  69. FOLIC ACID. [Concomitant]
     Active Substance: FOLIC ACID
  70. PRILOSEC [Suspect]
     Active Substance: OMEPRAZOLE MAGNESIUM
     Indication: GASTROOESOPHAGEAL REFLUX DISEASE
     Dosage: GENERIC
     Route: 065
     Dates: start: 20090808, end: 20170202
  71. DULOXETINE. [Concomitant]
     Active Substance: DULOXETINE
     Indication: DEPRESSION
     Dates: start: 201603, end: 201607
  72. IBUPROFEN. [Concomitant]
     Active Substance: IBUPROFEN
     Indication: PYREXIA
     Dates: start: 200908
  73. CALCIUM [Concomitant]
     Active Substance: CALCIUM
     Indication: SUPPLEMENTATION THERAPY
     Dates: start: 201801
  74. RANITIDINE. [Concomitant]
     Active Substance: RANITIDINE
  75. AMLODIPINE BESYLATE. [Concomitant]
     Active Substance: AMLODIPINE BESYLATE
  76. MONTELUKAST [Concomitant]
     Active Substance: MONTELUKAST SODIUM
  77. EPOGEN [Concomitant]
     Active Substance: ERYTHROPOIETIN

REACTIONS (5)
  - Oedema peripheral [Unknown]
  - End stage renal disease [Unknown]
  - Acute kidney injury [Not Recovered/Not Resolved]
  - Chronic kidney disease [Not Recovered/Not Resolved]
  - Renal failure [Unknown]

NARRATIVE: CASE EVENT DATE: 20150817
